FAERS Safety Report 4536979-7 (Version None)
Quarter: 2004Q4

REPORT INFORMATION
  Report Type: 
  Country: None (occurrence: None)
  Receive Date: 20041220
  Receipt Date: 20041119
  Transmission Date: 20050328
  Serious: Yes (Life-Threatening, Hospitalization)
  Sender: FDA-Public Use
  Company Number: A02200403454

PATIENT
  Age: 55 Year
  Sex: Male

DRUGS (2)
  1. PLAVIX [Suspect]
     Indication: PERIPHERAL OCCLUSIVE DISEASE
     Dosage: 75 MG OD, ORAL
     Route: 048
     Dates: start: 19990101, end: 20040814
  2. VIOXX [Suspect]
     Indication: ROTATOR CUFF SYNDROME
     Dosage: 25 MG OD, ORAL
     Route: 048
     Dates: start: 20040805, end: 20040813

REACTIONS (1)
  - GASTRIC ULCER PERFORATION [None]
